FAERS Safety Report 4608457-8 (Version None)
Quarter: 2005Q1

REPORT INFORMATION
  Report Type: 
  Country: None (occurrence: None)
  Receive Date: 20050311
  Receipt Date: 20050225
  Transmission Date: 20050727
  Serious: Yes (Death, Hospitalization)
  Sender: FDA-Public Use
  Company Number: 2005-UK-00327UK

PATIENT
  Age: 38 Year
  Sex: Female

DRUGS (5)
  1. NEVIRAPINE [Suspect]
     Indication: HIV INFECTION
     Dates: start: 20041008, end: 20050213
  2. DIDANOSINE [Suspect]
     Indication: HIV INFECTION
     Dates: start: 20041008, end: 20050213
  3. STAVUDINE [Suspect]
     Indication: HIV INFECTION
     Dates: start: 20041008, end: 20050213
  4. CARBAMAZEPINE (CARBAMAZEPINE) (NR) [Concomitant]
  5. GLIBENCLAMIDE (GLIBENCLAMIDE) (NR) [Concomitant]

REACTIONS (15)
  - ABDOMINAL PAIN UPPER [None]
  - BACK PAIN [None]
  - BLOOD AMYLASE INCREASED [None]
  - BLOOD PRESSURE IMMEASURABLE [None]
  - DYSPNOEA [None]
  - GENERAL PHYSICAL HEALTH DETERIORATION [None]
  - HEPATIC FAILURE [None]
  - HEPATIC STEATOSIS [None]
  - INTERNATIONAL NORMALISED RATIO INCREASED [None]
  - NAUSEA [None]
  - NIGHT SWEATS [None]
  - PAIN IN EXTREMITY [None]
  - PALLOR [None]
  - PYREXIA [None]
  - VOMITING [None]
